FAERS Safety Report 9003868 (Version 1)
Quarter: 2013Q1

REPORT INFORMATION
  Report Type: Spontaneous
  Country: US (occurrence: US)
  Receive Date: 20130108
  Receipt Date: 20130108
  Transmission Date: 20140127
  Serious: No
  Sender: FDA-Public Use
  Company Number: US-GLAXOSMITHKLINE-A0998557A

PATIENT
  Age: 42 Year
  Sex: Male

DRUGS (1)
  1. LOVAZA [Suspect]
     Indication: HYPERTRIGLYCERIDAEMIA

REACTIONS (2)
  - Hepatic enzyme increased [Recovered/Resolved]
  - Alanine aminotransferase increased [Recovered/Resolved]
